APPROVED DRUG PRODUCT: GLIMEPIRIDE
Active Ingredient: GLIMEPIRIDE
Strength: 1MG
Dosage Form/Route: TABLET;ORAL
Application: A078952 | Product #001
Applicant: HIKMA PHARMACEUTICALS
Approved: Aug 1, 2013 | RLD: No | RS: No | Type: DISCN